FAERS Safety Report 4583909-8 (Version None)
Quarter: 2005Q1

REPORT INFORMATION
  Report Type: 
  Country: None (occurrence: None)
  Receive Date: 20050216
  Receipt Date: 20041025
  Transmission Date: 20050727
  Serious: No
  Sender: FDA-Public Use
  Company Number: US-GLAXOSMITHKLINE-A0531216A

PATIENT
  Age: 75 Year
  Sex: Male
  Weight: 96.4 kg

DRUGS (2)
  1. AVODART [Suspect]
     Indication: BENIGN PROSTATIC HYPERPLASIA
     Dosage: .5MG PER DAY
     Route: 048
     Dates: end: 20041011
  2. FLOMAX [Concomitant]
     Dosage: .4MG PER DAY
     Route: 048
     Dates: start: 19980101

REACTIONS (1)
  - BREAST TENDERNESS [None]
